FAERS Safety Report 12491771 (Version 1)
Quarter: 2016Q2

REPORT INFORMATION
  Report Type: Spontaneous
  Country: DE (occurrence: DE)
  Receive Date: 20160623
  Receipt Date: 20160623
  Transmission Date: 20160815
  Serious: Yes (Death, Hospitalization)
  Sender: FDA-Public Use
  Company Number: GXKR2016DE002837

PATIENT

DRUGS (5)
  1. CHLOROQUINE. [Concomitant]
     Active Substance: CHLOROQUINE
     Indication: RHEUMATOID ARTHRITIS
     Dosage: DAILY DOSE: 250 MG MILLGRAM(S) EVERY DAYS
     Route: 048
     Dates: start: 201508, end: 201511
  2. SULFASALAZINE DELAYED-RELEASE [Concomitant]
     Active Substance: SULFASALAZINE
     Indication: RHEUMATOID ARTHRITIS
     Dosage: DAILY DOSE: 2000 MG MILLGRAM(S) EVERY DAYS
     Route: 048
     Dates: start: 201510, end: 201511
  3. ANAKINRA [Concomitant]
     Active Substance: ANAKINRA
     Indication: RHEUMATOID ARTHRITIS
     Dosage: DAILY DOSE: 100 MG MILLGRAM(S) EVERY DAYS
     Route: 058
     Dates: start: 201511, end: 201602
  4. RITUXIMAB [Suspect]
     Active Substance: RITUXIMAB
     Indication: RHEUMATOID ARTHRITIS
     Dosage: DAILY DOSE: 2000 MG MILLGRAM(S) EVERY 6 MONTHS
     Route: 042
     Dates: start: 2009, end: 201504
  5. METHOTREXATE [Suspect]
     Active Substance: METHOTREXATE
     Indication: RHEUMATOID ARTHRITIS
     Dosage: DAILY DOSE: 12.5 MG MILLGRAM(S) EVERY WEEKS
     Route: 058
     Dates: start: 2009, end: 201504

REACTIONS (20)
  - Meningitis aseptic [Fatal]
  - Hypercoagulation [Fatal]
  - Pericardial effusion [Fatal]
  - Vasculitis [Fatal]
  - Myelitis [Fatal]
  - Encephalitis [Fatal]
  - Gastritis [Fatal]
  - Ascites [Fatal]
  - Complement factor C3 decreased [Fatal]
  - Pyelonephritis [Fatal]
  - Nephritic syndrome [Fatal]
  - Glomerulonephritis chronic [Fatal]
  - Blood lactate dehydrogenase increased [Fatal]
  - Vitamin B12 deficiency [Fatal]
  - Pleural effusion [Fatal]
  - Pneumonia [Fatal]
  - Acute kidney injury [Fatal]
  - Anaemia [Fatal]
  - Colitis [Fatal]
  - Blood immunoglobulin M decreased [Fatal]

NARRATIVE: CASE EVENT DATE: 2014
